FAERS Safety Report 24252441 (Version 1)
Quarter: 2024Q3

REPORT INFORMATION
  Report Type: Spontaneous
  Country: GB (occurrence: GB)
  Receive Date: 20240827
  Receipt Date: 20240827
  Transmission Date: 20241016
  Serious: Yes (Other)
  Sender: TEVA
  Company Number: None

PATIENT
  Sex: Male

DRUGS (1)
  1. MONTELUKAST [Suspect]
     Active Substance: MONTELUKAST SODIUM
     Route: 065

REACTIONS (3)
  - Depressed mood [Not Recovered/Not Resolved]
  - Aggression [Not Recovered/Not Resolved]
  - Disturbance in attention [Not Recovered/Not Resolved]
